FAERS Safety Report 5119963-4 (Version None)
Quarter: 2006Q3

REPORT INFORMATION
  Report Type: 
  Country: None (occurrence: None)
  Receive Date: 20060929
  Receipt Date: 20060913
  Transmission Date: 20061208
  Serious: Yes (Hospitalization)
  Sender: FDA-Public Use
  Company Number: 2006104015

PATIENT
  Age: 69 Year
  Sex: Male

DRUGS (7)
  1. SUTENT [Suspect]
     Indication: RENAL CELL CARCINOMA STAGE UNSPECIFIED
     Dosage: 50 MG (50 MG, DAILY), ORAL
     Route: 048
     Dates: start: 20060814
  2. BISOPROLOL FUMARATE [Concomitant]
  3. ALLOPURINOL [Concomitant]
  4. LASIX [Concomitant]
  5. ZURCAL (PANTOPRAZOLE SODIUM) [Concomitant]
  6. ENALAPRIL MALEATE [Concomitant]
  7. SIMVASTATIN [Concomitant]

REACTIONS (9)
  - ASTHENIA [None]
  - DIARRHOEA [None]
  - HEPATOTOXICITY [None]
  - LEUKOPENIA [None]
  - NAUSEA [None]
  - PYREXIA [None]
  - THROMBOCYTOPENIA [None]
  - VOMITING [None]
  - YELLOW SKIN [None]
